FAERS Safety Report 7458565-1 (Version None)
Quarter: 2011Q2

REPORT INFORMATION
  Report Type: 
  Country: None (occurrence: None)
  Receive Date: 20110504
  Receipt Date: 20110429
  Transmission Date: 20111010
  Serious: Yes (Hospitalization, Other)
  Sender: FDA-Public Use
  Company Number: GB-ABBOTT-11P-167-0723017-00

PATIENT
  Age: 66 Year
  Sex: Male

DRUGS (3)
  1. CLARITHROMYCIN [Suspect]
     Indication: LOWER RESPIRATORY TRACT INFECTION
     Route: 048
     Dates: start: 20110211, end: 20110218
  2. STATIN UNSPECIFIED [Concomitant]
     Indication: PRODUCT USED FOR UNKNOWN INDICATION
  3. PROGRAF [Interacting]
     Indication: HEART TRANSPLANT
     Dates: start: 19990101

REACTIONS (6)
  - LETHARGY [None]
  - NAUSEA [None]
  - RENAL FAILURE ACUTE [None]
  - DIARRHOEA [None]
  - DRUG INTERACTION [None]
  - VOMITING [None]
